FAERS Safety Report 12433588 (Version 2)
Quarter: 2016Q3

REPORT INFORMATION
  Report Type: Spontaneous
  Country: US (occurrence: US)
  Receive Date: 20160603
  Receipt Date: 20160719
  Transmission Date: 20161109
  Serious: Yes (Other)
  Sender: FDA-Public Use
  Company Number: US-ELI_LILLY_AND_COMPANY-US201605006761

PATIENT
  Age: 82 Year
  Sex: Male
  Weight: 97.51 kg

DRUGS (7)
  1. AMLODIPINE [Concomitant]
     Active Substance: AMLODIPINE BESYLATE
     Indication: HYPERTENSION
  2. RAMIPRIL. [Concomitant]
     Active Substance: RAMIPRIL
  3. CARVEDILOL. [Concomitant]
     Active Substance: CARVEDILOL
  4. LIPITOR [Concomitant]
     Active Substance: ATORVASTATIN CALCIUM
     Indication: BLOOD CHOLESTEROL INCREASED
  5. GLIMEPIRIDE. [Concomitant]
     Active Substance: GLIMEPIRIDE
  6. TRULICITY [Suspect]
     Active Substance: DULAGLUTIDE
     Indication: TYPE 2 DIABETES MELLITUS
     Dosage: .75 MG, UNKNOWN
     Route: 065
     Dates: start: 201603, end: 20160515
  7. ASPIRIN                            /00002701/ [Concomitant]
     Active Substance: ASPIRIN
     Dosage: 81 MG, UNK

REACTIONS (7)
  - Joint stiffness [Unknown]
  - Thyroid mass [Unknown]
  - Gastrooesophageal reflux disease [Unknown]
  - Myalgia [Not Recovered/Not Resolved]
  - Nausea [Unknown]
  - Muscular weakness [Unknown]
  - Arthralgia [Not Recovered/Not Resolved]

NARRATIVE: CASE EVENT DATE: 20160301
